FAERS Safety Report 9005180 (Version 1)
Quarter: 2013Q1

REPORT INFORMATION
  Report Type: Spontaneous
  Country: US (occurrence: None)
  Receive Date: 20130107
  Receipt Date: 20130107
  Transmission Date: 20140127
  Serious: No
  Sender: FDA-Public Use
  Company Number: None

PATIENT
  Age: 33 Year
  Sex: Male
  Weight: 68.49 kg

DRUGS (2)
  1. ESCITALOPRAM [Suspect]
     Indication: ANXIETY
     Dosage: 10 1 PO
     Route: 048
     Dates: start: 20121212, end: 20121213
  2. ESCITALOPRAM [Suspect]
     Indication: PANIC ATTACK
     Dosage: 10 1 PO
     Route: 048
     Dates: start: 20121212, end: 20121213

REACTIONS (7)
  - Panic attack [None]
  - Malaise [None]
  - Product substitution issue [None]
  - Condition aggravated [None]
  - Dyspnoea [None]
  - Blood pressure increased [None]
  - Drug ineffective [None]
